FAERS Safety Report 6207926-7 (Version None)
Quarter: 2009Q2

REPORT INFORMATION
  Report Type: 
  Country: None (occurrence: None)
  Receive Date: 20090529
  Receipt Date: 20080804
  Transmission Date: 20091009
  Serious: No
  Sender: FDA-Public Use
  Company Number: A0735611A

PATIENT
  Age: 47 Year
  Sex: Female
  Weight: 50 kg

DRUGS (23)
  1. FLOLAN [Suspect]
     Indication: PULMONARY ARTERIAL HYPERTENSION
     Route: 042
     Dates: start: 19981128
  2. VICODIN [Concomitant]
     Route: 048
  3. PROMETHAZINE [Concomitant]
     Dosage: 25MG AS REQUIRED
     Route: 048
  4. MEGESTROL ACETATE [Concomitant]
     Dosage: 4TSP PER DAY
  5. SPIRIVA [Concomitant]
     Dosage: 1PUFF PER DAY
     Route: 055
  6. NORVASC [Concomitant]
     Dosage: 10MG PER DAY
     Route: 048
  7. FUROSEMIDE [Concomitant]
     Dosage: 40MG PER DAY
     Route: 048
  8. ATIVAN [Concomitant]
     Dosage: 1MG FOUR TIMES PER DAY
     Route: 048
  9. VALIUM [Concomitant]
     Dosage: 5MG PER DAY
     Route: 048
  10. NEXIUM [Concomitant]
     Dosage: 40MG PER DAY
     Route: 048
  11. ALBUTEROL [Concomitant]
     Dosage: 1AMP AS REQUIRED
     Route: 055
  12. CELEXA [Concomitant]
     Dosage: 40MG PER DAY
     Route: 048
  13. UNSPECIFIED MEDICATION [Concomitant]
     Dosage: 1TAB PER DAY
     Route: 048
  14. LORAZEPAM [Concomitant]
     Dosage: 5MG PER DAY
     Route: 048
  15. PROTONIX [Concomitant]
     Dosage: 40MG PER DAY
     Route: 048
  16. PERCOCET [Concomitant]
     Dosage: 2TAB FOUR TIMES PER DAY
     Route: 048
  17. COUMADIN [Concomitant]
     Dosage: 5MG ALTERNATE DAYS
     Route: 048
  18. SINGULAIR [Concomitant]
     Dosage: 10MG AT NIGHT
     Route: 048
  19. PULMICORT-100 [Concomitant]
     Dosage: 2PUFF TWICE PER DAY
     Route: 055
  20. PROVENTIL [Concomitant]
     Dosage: 2PUFF SIX TIMES PER DAY
     Route: 055
  21. HEPARIN [Concomitant]
     Route: 042
  22. SODIUM CHLORIDE [Concomitant]
     Route: 042
  23. OXYGEN [Concomitant]
     Dosage: 6L CONTINUOUS
     Route: 045

REACTIONS (1)
  - PROCEDURAL COMPLICATION [None]
